FAERS Safety Report 8289207-3 (Version None)
Quarter: 2012Q2

REPORT INFORMATION
  Report Type: 
  Country: None (occurrence: None)
  Receive Date: 20120412
  Receipt Date: 20120330
  Transmission Date: 20120825
  Serious: Yes (Death, Other)
  Sender: FDA-Public Use
  Company Number: MC201200214

PATIENT
  Age: 2 Month
  Sex: Female
  Weight: 3.1 kg

DRUGS (4)
  1. ENOXAPARIN SODIUM [Concomitant]
  2. UNFRACTIONATED HEPARIN (HEPARIN) [Concomitant]
  3. ANGIOMAX [Suspect]
     Indication: THROMBOSIS PROPHYLAXIS
     Dosage: 0.1;0.12;0.14;0.22;0.27;0.32;0.4;0.48;0.58;0.46;0.37 MG/KG, HR, INTRAVENOUS
     Route: 042
     Dates: start: 20110101, end: 20110102
  4. ANGIOMAX [Suspect]
     Indication: THROMBOSIS PROPHYLAXIS
     Dosage: 0.1;0.12;0.14;0.22;0.27;0.32;0.4;0.48;0.58;0.46;0.37 MG/KG, HR, INTRAVENOUS
     Route: 042

REACTIONS (9)
  - OFF LABEL USE [None]
  - INFECTIOUS PERITONITIS [None]
  - DEEP VEIN THROMBOSIS [None]
  - ACTIVATED PARTIAL THROMBOPLASTIN TIME PROLONGED [None]
  - LUNG INFECTION PSEUDOMONAL [None]
  - RENAL IMPAIRMENT [None]
  - BACTERAEMIA [None]
  - PERITONEAL DIALYSIS [None]
  - ACTIVATED PARTIAL THROMBOPLASTIN TIME SHORTENED [None]
